FAERS Safety Report 5642078-3 (Version None)
Quarter: 2008Q1

REPORT INFORMATION
  Report Type: 
  Country: None (occurrence: None)
  Receive Date: 20080227
  Receipt Date: 20080215
  Transmission Date: 20080703
  Serious: Yes (Other)
  Sender: FDA-Public Use
  Company Number: US-PFIZER INC-2008016701

PATIENT
  Sex: Female
  Weight: 62.272 kg

DRUGS (3)
  1. CHANTIX [Suspect]
     Indication: SMOKING CESSATION THERAPY
     Dates: start: 20070901, end: 20080208
  2. CRESTOR [Concomitant]
     Indication: BLOOD CHOLESTEROL INCREASED
  3. PERPHENAZINE [Concomitant]
     Indication: MENTAL DISORDER

REACTIONS (7)
  - DEPRESSED MOOD [None]
  - FALL [None]
  - HALLUCINATION [None]
  - JOINT SPRAIN [None]
  - LOSS OF CONSCIOUSNESS [None]
  - NEUROSIS [None]
  - SUICIDAL IDEATION [None]
